FAERS Safety Report 18437202 (Version 1)
Quarter: 2020Q4

REPORT INFORMATION
  Report Type: Report from Study
  Country: CA (occurrence: CA)
  Receive Date: 20201028
  Receipt Date: 20201028
  Transmission Date: 20210114
  Serious: Yes (Hospitalization)
  Sender: FDA-Public Use
  Company Number: CA-JNJFOC-20201024420

PATIENT
  Age: 68 Year
  Sex: Female

DRUGS (18)
  1. GLICLAZIDE [Concomitant]
     Active Substance: GLICLAZIDE
  2. FOLIC ACID. [Concomitant]
     Active Substance: FOLIC ACID
  3. T3 [Concomitant]
     Active Substance: LIOTHYRONINE SODIUM
  4. ATENOLOL. [Concomitant]
     Active Substance: ATENOLOL
  5. EZETIMIBE. [Concomitant]
     Active Substance: EZETIMIBE
  6. PERINDOPRIL [Concomitant]
     Active Substance: PERINDOPRIL
  7. FORXIGA [Concomitant]
     Active Substance: DAPAGLIFLOZIN
  8. RABEPRAZOLE [Concomitant]
     Active Substance: RABEPRAZOLE
  9. MULTIVITAMINS                      /00116001/ [Concomitant]
     Active Substance: VITAMINS
  10. BREO ELLIPTA [Concomitant]
     Active Substance: FLUTICASONE FUROATE\VILANTEROL TRIFENATATE
  11. AMLODIPINE [Concomitant]
     Active Substance: AMLODIPINE BESYLATE
  12. UPTRAVI [Suspect]
     Active Substance: SELEXIPAG
     Indication: PULMONARY HYPERTENSION
     Route: 048
     Dates: start: 20200615
  13. JANUMET [Concomitant]
     Active Substance: METFORMIN HYDROCHLORIDE\SITAGLIPTIN PHOSPHATE
  14. OPSUMIT [Interacting]
     Active Substance: MACITENTAN
     Indication: PULMONARY HYPERTENSION
     Route: 048
     Dates: start: 20200303
  15. FUROSEMIDE. [Concomitant]
     Active Substance: FUROSEMIDE
  16. SALBUTAMOL [Concomitant]
     Active Substance: ALBUTEROL
  17. HYDROCORTISONE. [Concomitant]
     Active Substance: HYDROCORTISONE
  18. ROSUVASTATIN. [Concomitant]
     Active Substance: ROSUVASTATIN

REACTIONS (4)
  - Psoriasis [Unknown]
  - Drug interaction [Recovered/Resolved]
  - Eye disorder [Not Recovered/Not Resolved]
  - Arthritis [Unknown]

NARRATIVE: CASE EVENT DATE: 202004
